FAERS Safety Report 9594024 (Version 1)
Quarter: 2013Q3

REPORT INFORMATION
  Report Type: Spontaneous
  Country: US (occurrence: None)
  Receive Date: 20130930
  Receipt Date: 20130930
  Transmission Date: 20140515
  Serious: Yes (Other)
  Sender: FDA-Public Use
  Company Number: 1000047942

PATIENT
  Age: 75 Year
  Sex: Female

DRUGS (17)
  1. LINZESS [Suspect]
     Indication: CONSTIPATION
     Dosage: 145 MCG (145 MCG, 1 IN 1 D), ORAL
     Route: 048
     Dates: start: 20130714
  2. XANAX [Concomitant]
  3. AMLODIPINE (AMLODIPINE) (AMLODIPINE) [Concomitant]
  4. HYDROCHLOROTHIAZIDE (HYDROCHLOROTHIAZIDE) (HYDROCHLOROTHIAZIDE)? [Concomitant]
  5. BENICAR (OLMESARTAN MEDOXOMIL) (OLMESARTAN MEDOXOMIL) [Concomitant]
  6. SANCTURA (TROSPIUM CHLORIDE) (TROSPIUM CHLORIDE) [Concomitant]
  7. CRESTOR (ROSUVASTATIN CALCIUM) (ROSUVASTATIN CALCIUM)? [Concomitant]
  8. PRILOSEC (OMEPRAZOLE) (OMEPRAZOLE) [Concomitant]
  9. ADVAIR (FLUTICASONE) (FLUTICASONE) [Concomitant]
  10. PROVENTIL (ALBUTEROL) (ALBUTEROL) [Concomitant]
  11. BABY ASPIRIN (ACETYLSALICYLIC ACID) (ACETYLSALICYLIC ACID) [Concomitant]
  12. CALCIUM (CALCIUM) (CALCIUM) [Concomitant]
  13. VITAMIN D (VITAMIN D) (VITAMIN D) [Concomitant]
  14. MAGNESIUM OXIDE [Concomitant]
  15. CO Q10 (UBIDECARENONE) (UBIDECARENONE) [Concomitant]
  16. TYLENOL (ACETAMINOPHEN) (ACETAMINOPHEN) [Concomitant]
  17. MILK OF MAGNESIA [Concomitant]

REACTIONS (1)
  - Drug ineffective [None]
